FAERS Safety Report 15665155 (Version 1)
Quarter: 2018Q4

REPORT INFORMATION
  Report Type: Spontaneous
  Country: US (occurrence: US)
  Receive Date: 20181128
  Receipt Date: 20181128
  Transmission Date: 20190205
  Serious: Yes (Other)
  Sender: FDA-Public Use
  Company Number: US-NOVOPROD-634314

PATIENT
  Age: 64 Year
  Sex: Male
  Weight: 71.66 kg

DRUGS (2)
  1. TRESIBA FLEXTOUCH U200 [Suspect]
     Active Substance: INSULIN DEGLUDEC
     Dosage: UNK
     Route: 058
     Dates: start: 201811, end: 201811
  2. TRESIBA FLEXTOUCH U200 [Suspect]
     Active Substance: INSULIN DEGLUDEC
     Indication: DIABETES INSIPIDUS
     Dosage: 12-16 UNITS
     Route: 058
     Dates: start: 2017, end: 201806

REACTIONS (9)
  - Osteoporosis [Unknown]
  - Blood glucose increased [Unknown]
  - Blood glucose decreased [Unknown]
  - Muscular weakness [Unknown]
  - Platelet count decreased [Unknown]
  - Weight decreased [Unknown]
  - Fall [Unknown]
  - Product use in unapproved indication [Recovered/Resolved]
  - Rib fracture [Unknown]

NARRATIVE: CASE EVENT DATE: 2017
